FAERS Safety Report 26057868 (Version 1)
Quarter: 2025Q4

REPORT INFORMATION
  Report Type: Spontaneous
  Country: US (occurrence: US)
  Receive Date: 20251118
  Receipt Date: 20251118
  Transmission Date: 20260118
  Serious: No
  Sender: TARO
  Company Number: US-TARO PHARMACEUTICALS USA INC.-2025TAR01098

PATIENT

DRUGS (1)
  1. MUPIROCIN [Suspect]
     Active Substance: MUPIROCIN
     Indication: Lip disorder
     Dosage: TID, PEA SIZE MAYBE A LITTLE BIT LESS
     Route: 061
     Dates: start: 20250310

REACTIONS (4)
  - Eye pain [Not Recovered/Not Resolved]
  - Discomfort [Not Recovered/Not Resolved]
  - Accidental exposure to product [Unknown]
  - Eye irritation [Not Recovered/Not Resolved]

NARRATIVE: CASE EVENT DATE: 20250311
